FAERS Safety Report 7640163-8 (Version None)
Quarter: 2011Q3

REPORT INFORMATION
  Report Type: 
  Country: None (occurrence: None)
  Receive Date: 20110728
  Receipt Date: 20110630
  Transmission Date: 20111222
  Serious: No
  Sender: FDA-Public Use
  Company Number: US-BAYER-2011-058815

PATIENT
  Age: 81 Year
  Sex: Female
  Weight: 61 kg

DRUGS (4)
  1. ALEVE (CAPLET) [Suspect]
     Indication: BACK PAIN
     Dosage: 1 DF, UNK
     Route: 048
  2. NEUROPATHY MEDICATION [Concomitant]
  3. CALCIUM ACETATE [Concomitant]
  4. DIABETIC MEDICATION [Concomitant]

REACTIONS (1)
  - DIZZINESS [None]
